FAERS Safety Report 18764979 (Version 2)
Quarter: 2021Q2

REPORT INFORMATION
  Report Type: Report from Study
  Country: None (occurrence: GB)
  Receive Date: 20210121
  Receipt Date: 20210415
  Transmission Date: 20210717
  Serious: No
  Sender: FDA-Public Use
  Company Number: GB-ABBVIE-20K-167-3500026-00

PATIENT
  Sex: Female

DRUGS (1)
  1. HUMIRA [Suspect]
     Active Substance: ADALIMUMAB
     Indication: RHEUMATOID ARTHRITIS
     Route: 058

REACTIONS (5)
  - Hypoacusis [Unknown]
  - Malaise [Unknown]
  - Hiatus hernia [Unknown]
  - Swelling face [Unknown]
  - Arthralgia [Recovering/Resolving]
